FAERS Safety Report 12468265 (Version 3)
Quarter: 2016Q3

REPORT INFORMATION
  Report Type: Spontaneous
  Country: JP (occurrence: JP)
  Receive Date: 20160615
  Receipt Date: 20160719
  Transmission Date: 20161109
  Serious: Yes (Other)
  Sender: FDA-Public Use
  Company Number: JP-ROCHE-1776371

PATIENT
  Age: 8 Month
  Sex: Male

DRUGS (1)
  1. CEFTRIAXONE SODIUM. [Suspect]
     Active Substance: CEFTRIAXONE SODIUM
     Indication: MENINGITIS
     Dosage: DOSAGE IS UNCERTAIN.
     Route: 042

REACTIONS (3)
  - Cholecystitis [Unknown]
  - Bile duct stone [Unknown]
  - Cholelithiasis [Unknown]
